FAERS Safety Report 4555476-6 (Version None)
Quarter: 2004Q4

REPORT INFORMATION
  Report Type: 
  Country: None (occurrence: None)
  Receive Date: 20041217
  Receipt Date: 20041006
  Transmission Date: 20050328
  Serious: Yes (Other)
  Sender: FDA-Public Use
  Company Number: PHEH2004US10771

PATIENT
  Age: 52 Year
  Sex: Female

DRUGS (1)
  1. SANDOSTATIN [Suspect]
     Dosage: 100 UG, ONCE/SINGLE, SUBCUTANEOUS
     Route: 058
     Dates: start: 20040920, end: 20040920

REACTIONS (4)
  - ANAPHYLACTIC REACTION [None]
  - FACE OEDEMA [None]
  - OROPHARYNGEAL SWELLING [None]
  - URTICARIA [None]
